FAERS Safety Report 16223952 (Version 1)
Quarter: 2019Q2

REPORT INFORMATION
  Report Type: Spontaneous
  Country: JP (occurrence: JP)
  Receive Date: 20190422
  Receipt Date: 20190422
  Transmission Date: 20190711
  Serious: Yes (Other)
  Sender: FDA-Public Use
  Company Number: JP-009507513-1904JPN002417J

PATIENT
  Age: 35 Year
  Sex: Female

DRUGS (1)
  1. SINGULAIR [Suspect]
     Active Substance: MONTELUKAST SODIUM
     Dosage: 10MG 1T
     Route: 048
     Dates: start: 201605, end: 201605

REACTIONS (1)
  - Oculomucocutaneous syndrome [Unknown]
